FAERS Safety Report 15660592 (Version 1)
Quarter: 2018Q4

REPORT INFORMATION
  Report Type: Report from Study
  Country: US (occurrence: US)
  Receive Date: 20181127
  Receipt Date: 20181127
  Transmission Date: 20190205
  Serious: Yes (Hospitalization, Other)
  Sender: FDA-Public Use
  Company Number: US-GILEAD-2018-0376330

PATIENT
  Age: 88 Year
  Sex: Female

DRUGS (2)
  1. AMBRISENTAN [Suspect]
     Active Substance: AMBRISENTAN
     Indication: PULMONARY HYPERTENSION
     Dosage: 10 MG, QD
     Route: 065
     Dates: start: 20170912, end: 20181114
  2. ESBRIET [Concomitant]
     Active Substance: PIRFENIDONE

REACTIONS (3)
  - Drug ineffective [Unknown]
  - Unevaluable event [Unknown]
  - Fluid retention [Unknown]

NARRATIVE: CASE EVENT DATE: 20181112
